FAERS Safety Report 4496835-X (Version None)
Quarter: 2004Q4

REPORT INFORMATION
  Report Type: 
  Country: None (occurrence: None)
  Receive Date: 20041109
  Receipt Date: 20041105
  Transmission Date: 20050328
  Serious: Yes (Other)
  Sender: FDA-Public Use
  Company Number: US-GLAXOSMITHKLINE-A0532857A

PATIENT
  Age: 60 Year
  Sex: Female

DRUGS (5)
  1. PAXIL [Suspect]
     Dosage: 25MG PER DAY
     Route: 048
  2. PAXIL [Suspect]
     Route: 048
  3. XANAX [Concomitant]
  4. HYDROCHLOROTHIAZIDE [Concomitant]
  5. ESTRACE [Concomitant]

REACTIONS (4)
  - FLUSHING [None]
  - HYPERGLYCAEMIA [None]
  - HYPERHIDROSIS [None]
  - HYPOGLYCAEMIA [None]
